FAERS Safety Report 18098968 (Version 1)
Quarter: 2020Q3

REPORT INFORMATION
  Report Type: Spontaneous
  Country: NL (occurrence: NL)
  Receive Date: 20200731
  Receipt Date: 20200731
  Transmission Date: 20201103
  Serious: Yes (Other)
  Sender: FDA-Public Use
  Company Number: NL-TEVA-2020-NL-1810578

PATIENT
  Age: 60 Year
  Sex: Male
  Weight: 75 kg

DRUGS (3)
  1. OXICODON [Concomitant]
     Dosage: ROTIGOTINE (NEUPRO PATCHES 2MG / 24H)?THERAPY START DATE AND THERAPY END DATE : ASKED BUT UNKNOWN
  2. NEUPRO PLEISTERS 2 MG/24 H [Concomitant]
     Dosage: 2 MILLIGRAM DAILY; THERAPY START DATE AND THERAPY END DATE : ASKED BUT UNKNOWN, ROTIGOTINE (NEUPRO P
  3. VARDENAFIL TEVA 10 MG [Suspect]
     Active Substance: VARDENAFIL HYDROCHLORIDE
     Indication: ERECTILE DYSFUNCTION
     Dosage: 1 TO 2 X PER WEEK, THERAPY END DATE : ASKED BUT UNKNOWN, 1 DOSAGE FORMS
     Dates: start: 201912

REACTIONS (2)
  - Visual impairment [Not Recovered/Not Resolved]
  - Vitreous haemorrhage [Not Recovered/Not Resolved]

NARRATIVE: CASE EVENT DATE: 20200423
